FAERS Safety Report 18278000 (Version 1)
Quarter: 2020Q3

REPORT INFORMATION
  Report Type: Spontaneous
  Country: DE (occurrence: DE)
  Receive Date: 20200917
  Receipt Date: 20200917
  Transmission Date: 20201103
  Serious: Yes (Hospitalization)
  Sender: FDA-Public Use
  Company Number: DE-TEVA-2020-DE-1827620

PATIENT
  Age: 76 Year
  Sex: Female

DRUGS (10)
  1. BISOPROLOL [Concomitant]
     Active Substance: BISOPROLOL
     Dosage: UNIT DOSE : 5 MILLIGRAM
  2. OLANZAPIN [Suspect]
     Active Substance: OLANZAPINE
     Dosage: UNIT DOSE : 5 MILLIGRAM
     Dates: start: 20200402, end: 20200409
  3. TRAZODON [Suspect]
     Active Substance: TRAZODONE HYDROCHLORIDE
     Dosage: UNIT DOSE : 150 MILLIGRAM
     Dates: start: 20200415, end: 20200420
  4. ATORVASTATIN [Concomitant]
     Active Substance: ATORVASTATIN
     Dosage: UNIT DOSE : 40 MILLIGRAM
  5. TRAZODON [Suspect]
     Active Substance: TRAZODONE HYDROCHLORIDE
     Dosage: UNIT DOSE : 100 MILLIGRAM
     Dates: start: 20200406, end: 20200414
  6. ASPIRIN. [Concomitant]
     Active Substance: ASPIRIN
     Dosage: UNIT DOSE : 100 MILLIGRAM
  7. TRAZODON [Suspect]
     Active Substance: TRAZODONE HYDROCHLORIDE
     Dosage: UNIT DOSE : 50 MILLIGRAM
     Dates: start: 20200331, end: 20200405
  8. OLANZAPIN [Suspect]
     Active Substance: OLANZAPINE
     Dosage: UNIT DOSE : 10 MILLIGRAM
     Dates: start: 20200410, end: 20200421
  9. SERTRALIN [Concomitant]
     Active Substance: SERTRALINE HYDROCHLORIDE
     Dosage: UNIT DOSE : 200 MILLIGRAM
     Dates: start: 20200301
  10. MIRTAZAPIN [Concomitant]
     Active Substance: MIRTAZAPINE
     Dosage: UNIT DOSE : 15 MILLIGRAM
     Dates: start: 20200402

REACTIONS (4)
  - Fall [Recovered/Resolved]
  - Gait disturbance [Recovered/Resolved]
  - Posture abnormal [Recovered/Resolved]
  - Pleurothotonus [Recovered/Resolved]

NARRATIVE: CASE EVENT DATE: 20200418
